FAERS Safety Report 13234094 (Version 1)
Quarter: 2017Q1

REPORT INFORMATION
  Report Type: Spontaneous
  Country: FR (occurrence: FR)
  Receive Date: 20170215
  Receipt Date: 20170215
  Transmission Date: 20170428
  Serious: Yes (Life-Threatening, Hospitalization)
  Sender: FDA-Public Use
  Company Number: FR-ORION CORPORATION ORION PHARMA-TREX2017-0510

PATIENT
  Age: 75 Year
  Sex: Female
  Weight: 54 kg

DRUGS (12)
  1. IMETH [Suspect]
     Active Substance: METHOTREXATE SODIUM
     Indication: RHEUMATOID ARTHRITIS
     Route: 048
  2. TRAMADOL. [Concomitant]
     Active Substance: TRAMADOL
     Route: 065
  3. DOLIPRANE [Concomitant]
     Active Substance: ACETAMINOPHEN
     Route: 065
  4. GELTIM LP [Concomitant]
     Active Substance: TIMOLOL MALEATE
     Dosage: IN LEFT EYE
     Route: 065
  5. SPECIAFOLDINE [Concomitant]
     Active Substance: FOLIC ACID
     Dosage: STRENGTH: 5 MG; 4 TABLETS ON FRIDAY EVENING
     Route: 065
  6. HYDROCORTANCYL [Concomitant]
     Active Substance: PREDNISONE
     Route: 065
     Dates: start: 20170110, end: 20170110
  7. CORTANCYL [Concomitant]
     Active Substance: PREDNISONE
     Route: 065
     Dates: start: 20170104
  8. IMETH [Suspect]
     Active Substance: METHOTREXATE SODIUM
     Dosage: ON TUESDAYS
     Route: 048
     Dates: start: 20170117
  9. APRANAX [Concomitant]
     Active Substance: NAPROXEN
     Route: 065
  10. MOPRAL [Concomitant]
     Active Substance: OMEPRAZOLE SODIUM
     Route: 065
  11. CRESTOR [Concomitant]
     Active Substance: ROSUVASTATIN CALCIUM
     Route: 065
  12. LEVOTHYROX [Concomitant]
     Active Substance: LEVOTHYROXINE
     Route: 065

REACTIONS (12)
  - Overdose [Unknown]
  - Abdominal pain upper [Unknown]
  - Infectious colitis [Unknown]
  - Renal tubular necrosis [Unknown]
  - Coma [Unknown]
  - Central nervous system lesion [Unknown]
  - Confusional state [Unknown]
  - Bone marrow failure [Recovering/Resolving]
  - Fungal infection [Unknown]
  - Renal failure [Recovering/Resolving]
  - Inflammation [Unknown]
  - Hepatocellular injury [Recovered/Resolved]

NARRATIVE: CASE EVENT DATE: 2017
